FAERS Safety Report 15682337 (Version 4)
Quarter: 2019Q1

REPORT INFORMATION
  Report Type: Spontaneous
  Country: PT (occurrence: PT)
  Receive Date: 20181203
  Receipt Date: 20190301
  Transmission Date: 20190417
  Serious: Yes (Hospitalization, Other)
  Sender: FDA-Public Use
  Company Number: PT-JNJFOC-20181134889

PATIENT
  Age: 32 Year
  Sex: Female

DRUGS (5)
  1. INFLIXIMAB, RECOMBINANT [Suspect]
     Active Substance: INFLIXIMAB
     Indication: BEHCET^S SYNDROME
     Route: 042
  2. PREDNISOLONE. [Suspect]
     Active Substance: PREDNISOLONE
     Indication: BEHCET^S SYNDROME
     Route: 065
  3. ENOXAPARIN SODIUM. [Suspect]
     Active Substance: ENOXAPARIN SODIUM
     Indication: BEHCET^S SYNDROME
     Route: 065
  4. ASPIRIN. [Suspect]
     Active Substance: ASPIRIN
     Indication: BEHCET^S SYNDROME
     Route: 065
  5. CERTOLIZUMAB PEGOL [Suspect]
     Active Substance: CERTOLIZUMAB PEGOL
     Indication: BEHCET^S SYNDROME
     Dosage: 1 CYCLICAL, AT 24 WEEKS
     Route: 065

REACTIONS (8)
  - Skin disorder [Recovering/Resolving]
  - Premature labour [Recovered/Resolved]
  - Drug ineffective for unapproved indication [Unknown]
  - Behcet^s syndrome [Unknown]
  - Exposure during pregnancy [Recovered/Resolved]
  - Off label use [Unknown]
  - Vulval disorder [Recovering/Resolving]
  - Twin pregnancy [Recovered/Resolved]
